FAERS Safety Report 6664350-0 (Version None)
Quarter: 2010Q2

REPORT INFORMATION
  Report Type: 
  Country: None (occurrence: None)
  Receive Date: 20100401
  Receipt Date: 20100325
  Transmission Date: 20101027
  Serious: Yes (Other)
  Sender: FDA-Public Use
  Company Number: PHHY2010MX08619

PATIENT
  Age: 68 Year
  Sex: Female

DRUGS (1)
  1. RASILEZ [Suspect]
     Indication: HYPERTENSION
     Dosage: 1 TABLET (150 MG) QD
     Route: 048
     Dates: start: 20091201

REACTIONS (2)
  - INFLUENZA [None]
  - PNEUMONIA [None]
